FAERS Safety Report 9218939 (Version 2)
Quarter: 2013Q2

REPORT INFORMATION
  Report Type: Spontaneous
  Country: US (occurrence: US)
  Receive Date: 20130409
  Receipt Date: 20130429
  Transmission Date: 20140414
  Serious: Yes (Other)
  Sender: FDA-Public Use
  Company Number: US-BAYER-2013-043521

PATIENT
  Age: 29 Year
  Sex: Female
  Weight: 62.6 kg

DRUGS (1)
  1. MIRENA [Suspect]
     Indication: CONTRACEPTION
     Dosage: 20 MCG/24HR, CONT
     Route: 015
     Dates: start: 20130220, end: 20130402

REACTIONS (3)
  - Uterine perforation [Recovered/Resolved]
  - Device dislocation [Recovered/Resolved]
  - Procedural pain [Recovered/Resolved]
